FAERS Safety Report 4898735-X (Version None)
Quarter: 2006Q1

REPORT INFORMATION
  Report Type: 
  Country: None (occurrence: None)
  Receive Date: 20060202
  Receipt Date: 20060124
  Transmission Date: 20060701
  Serious: Yes (Other)
  Sender: FDA-Public Use
  Company Number: US-JNJFOC-20060105128

PATIENT
  Sex: Male
  Weight: 53.07 kg

DRUGS (8)
  1. INFLIXIMAB [Suspect]
     Route: 042
  2. INFLIXIMAB [Suspect]
     Route: 042
  3. INFLIXIMAB [Suspect]
     Route: 042
  4. INFLIXIMAB [Suspect]
     Indication: CROHN'S DISEASE
     Route: 042
  5. MERCAPTOPURINE [Concomitant]
     Indication: CROHN'S DISEASE
  6. ANTISPASMOTIC [Concomitant]
     Indication: CROHN'S DISEASE
  7. BUDESONIDE [Concomitant]
     Indication: CROHN'S DISEASE
  8. PREDNISONE [Concomitant]
     Indication: CROHN'S DISEASE

REACTIONS (1)
  - HEPATIC NEOPLASM MALIGNANT [None]
